FAERS Safety Report 8579083-3 (Version None)
Quarter: 2012Q3

REPORT INFORMATION
  Report Type: 
  Country: None (occurrence: None)
  Receive Date: 20120808
  Receipt Date: 20120730
  Transmission Date: 20120928
  Serious: Yes (Other)
  Sender: FDA-Public Use
  Company Number: US-ASTRAZENECA-2012SE53766

PATIENT
  Age: 92 Year
  Sex: Female
  Weight: 74.4 kg

DRUGS (8)
  1. DIOVAN [Concomitant]
     Dosage: 80 MG
  2. LIPITOR GENERIC [Concomitant]
     Dosage: 10 MG
  3. SPIRIVA [Concomitant]
     Dosage: QD
  4. ASPIRIN [Concomitant]
     Dosage: 81 MG
  5. SYMBICORT [Suspect]
     Indication: CHRONIC OBSTRUCTIVE PULMONARY DISEASE
     Dosage: 160/4.5, 2 PUFFS BID
     Route: 055
     Dates: start: 20120616
  6. FLUTICASONE PROPIONATE [Concomitant]
  7. LEVOXYL GENERIC [Concomitant]
     Dosage: 0.15 MG
  8. MULTI-VITAMINS [Concomitant]
     Indication: VITAMIN SUPPLEMENTATION

REACTIONS (3)
  - GLAUCOMA [None]
  - HAEMATOCHEZIA [None]
  - DIARRHOEA [None]
